FAERS Safety Report 22169331 (Version 1)
Quarter: 2023Q2

REPORT INFORMATION
  Report Type: Spontaneous
  Country: CN (occurrence: CN)
  Receive Date: 20230404
  Receipt Date: 20230404
  Transmission Date: 20230721
  Serious: Yes (Other)
  Sender: FDA-Public Use
  Company Number: CN-BRISTOL-MYERS SQUIBB COMPANY-2023-047140

PATIENT
  Age: 58 Year
  Sex: Female
  Weight: 50 kg

DRUGS (3)
  1. OPDIVO [Suspect]
     Active Substance: NIVOLUMAB
     Indication: Small intestine carcinoma
     Route: 041
     Dates: start: 20230301, end: 20230301
  2. GIMERACIL\OTERACIL\TEGAFUR [Suspect]
     Active Substance: GIMERACIL\OTERACIL\OTERACIL POTASSIUM\TEGAFUR
     Indication: Small intestine carcinoma
     Route: 048
     Dates: start: 20230301, end: 20230314
  3. OXALIPLATIN [Suspect]
     Active Substance: OXALIPLATIN
     Indication: Small intestine carcinoma
     Route: 041
     Dates: start: 20230301, end: 20230301

REACTIONS (2)
  - Myelosuppression [Not Recovered/Not Resolved]
  - Off label use [Unknown]

NARRATIVE: CASE EVENT DATE: 20230321
